FAERS Safety Report 5956403-7 (Version None)
Quarter: 2008Q4

REPORT INFORMATION
  Report Type: 
  Country: None (occurrence: None)
  Receive Date: 20081118
  Receipt Date: 20081105
  Transmission Date: 20090506
  Serious: Yes (Hospitalization)
  Sender: FDA-Public Use
  Company Number: US-AVENTIS-200816090EU

PATIENT
  Age: 78 Year
  Sex: Female

DRUGS (15)
  1. LASIX [Suspect]
     Route: 048
     Dates: start: 20070601
  2. CODE UNBROKEN [Concomitant]
     Indication: OSTEOARTHRITIS
     Dosage: DOSE: UNK
     Route: 048
     Dates: start: 20070917, end: 20071201
  3. NEXIUM [Concomitant]
     Route: 048
     Dates: start: 20070710
  4. ACETYLSALICYLIC ACID SRT [Concomitant]
     Route: 048
     Dates: start: 20070606
  5. ATENOLOL [Concomitant]
     Route: 048
     Dates: start: 20070905
  6. SYNTHROID [Concomitant]
     Route: 048
     Dates: start: 19980101
  7. VERAPAMIL [Concomitant]
     Route: 048
     Dates: start: 20071201
  8. LISINOPRIL [Concomitant]
     Route: 048
     Dates: start: 20020101
  9. SIMVASTATIN [Concomitant]
     Route: 048
     Dates: start: 20070601
  10. FLUOXETINE [Concomitant]
     Route: 048
     Dates: start: 20040101
  11. MAGNESIUM SULFATE [Concomitant]
     Dosage: DOSE: UNK
     Route: 048
     Dates: start: 20070905
  12. COENZYME Q10                       /03913201/ [Concomitant]
     Dosage: DOSE: UNK
     Route: 048
     Dates: start: 20070905
  13. METOPROLOL TARTRATE [Concomitant]
     Dosage: DOSE: UNK
     Route: 048
  14. VIT B COMPLEX [Concomitant]
     Dosage: DOSE: UNK
     Route: 048
     Dates: start: 20070907
  15. DETROL [Concomitant]
     Route: 048
     Dates: start: 20060101

REACTIONS (2)
  - HYPONATRAEMIA [None]
  - MALAISE [None]
